FAERS Safety Report 9291833 (Version 3)
Quarter: 2013Q4

REPORT INFORMATION
  Report Type: Spontaneous
  Country: US (occurrence: US)
  Receive Date: 20130516
  Receipt Date: 20131003
  Transmission Date: 20140711
  Serious: No
  Sender: FDA-Public Use
  Company Number: US-BIOGENIDEC-2013BI042763

PATIENT
  Age: 44 Year
  Sex: Female

DRUGS (1)
  1. TYSABRI [Suspect]
     Indication: MULTIPLE SCLEROSIS
     Route: 042
     Dates: start: 20120321, end: 20130515

REACTIONS (7)
  - White blood cell count increased [Not Recovered/Not Resolved]
  - Aphthous stomatitis [Recovered/Resolved]
  - Muscle tightness [Recovered/Resolved]
  - Lymphocyte count abnormal [Unknown]
  - Nuclear magnetic resonance imaging abnormal [Unknown]
  - Fatigue [Recovered/Resolved]
  - Headache [Recovered/Resolved]
